FAERS Safety Report 4901789-5 (Version None)
Quarter: 2006Q1

REPORT INFORMATION
  Report Type: 
  Country: None (occurrence: None)
  Receive Date: 20060202
  Receipt Date: 20060202
  Transmission Date: 20060701
  Serious: Yes (Life-Threatening, Hospitalization)
  Sender: FDA-Public Use
  Company Number: None

PATIENT
  Age: 75 Year
  Sex: Female
  Weight: 120.6568 kg

DRUGS (1)
  1. LOVENOX [Suspect]
     Dosage: 120 MG Q12H SQ
     Route: 058
     Dates: start: 20050718, end: 20050720

REACTIONS (3)
  - ANAEMIA [None]
  - CARDIO-RESPIRATORY ARREST [None]
  - RETROPERITONEAL HAEMORRHAGE [None]
